FAERS Safety Report 25064272 (Version 1)
Quarter: 2025Q1

REPORT INFORMATION
  Report Type: Report from Study
  Country: US (occurrence: US)
  Receive Date: 20250311
  Receipt Date: 20250311
  Transmission Date: 20250409
  Serious: Yes (Hospitalization, Other)
  Sender: ABBVIE
  Company Number: US-ABBVIE-6146737

PATIENT
  Age: 73 Year
  Sex: Female
  Weight: 82 kg

DRUGS (8)
  1. SKYRIZI [Suspect]
     Active Substance: RISANKIZUMAB-RZAA
     Indication: Crohn^s disease
     Route: 058
     Dates: start: 202312, end: 20241220
  2. TAVALISSE [Concomitant]
     Active Substance: FOSTAMATINIB
     Indication: Immune thrombocytopenia
     Route: 065
  3. EFFEXOR [Concomitant]
     Active Substance: VENLAFAXINE HYDROCHLORIDE
     Indication: Anxiety
  4. AMLODIPINE [Concomitant]
     Active Substance: AMLODIPINE BESYLATE
     Indication: Hypertension
  5. HYDROCHLOROTHIAZIDE [Concomitant]
     Active Substance: HYDROCHLOROTHIAZIDE
     Indication: Cerebrovascular accident
  6. CARVEDILOL [Concomitant]
     Active Substance: CARVEDILOL
     Indication: Hypertension
  7. LOSARTAN [Concomitant]
     Active Substance: LOSARTAN
     Indication: Hypertension
  8. LEVOTHYROXINE [Concomitant]
     Active Substance: LEVOTHYROXINE
     Indication: Thyroid disorder

REACTIONS (15)
  - Deep vein thrombosis [Recovered/Resolved]
  - Cellulitis [Recovering/Resolving]
  - Staphylococcal infection [Recovering/Resolving]
  - Immunodeficiency [Not Recovered/Not Resolved]
  - Pain [Unknown]
  - Nausea [Recovered/Resolved]
  - Gait inability [Not Recovered/Not Resolved]
  - Cerebrovascular accident [Recovering/Resolving]
  - Thrombosis [Unknown]
  - Diarrhoea [Not Recovered/Not Resolved]
  - Balance disorder [Not Recovered/Not Resolved]
  - Dizziness [Recovered/Resolved]
  - White blood cell count decreased [Unknown]
  - Immune thrombocytopenia [Not Recovered/Not Resolved]
  - Device issue [Unknown]

NARRATIVE: CASE EVENT DATE: 20230101
